FAERS Safety Report 8941997 (Version 1)
Quarter: 2012Q4

REPORT INFORMATION
  Report Type: 
  Country: US (occurrence: US)
  Receive Date: 20121130
  Receipt Date: 20121130
  Transmission Date: 20130627
  Serious: Yes (Hospitalization)
  Sender: FDA-Public Use
  Company Number: US-B.I. PHARMACEUTICALS,INC./RIDGEFIELD-2012-BI-01498BP

PATIENT
  Age: 79 Year
  Sex: Female

DRUGS (4)
  1. PRADAXA [Suspect]
     Indication: ATRIAL FIBRILLATION
     Dosage: 300 mg
     Route: 048
  2. LOSARTAN [Concomitant]
     Route: 048
  3. JANUVIA [Concomitant]
     Indication: DIABETES MELLITUS
     Route: 048
  4. METFORMIN [Concomitant]
     Indication: DIABETES MELLITUS
     Route: 048

REACTIONS (4)
  - Gastric haemorrhage [Recovered/Resolved]
  - Haematochezia [Recovered/Resolved]
  - Influenza like illness [Recovered/Resolved]
  - Asthenia [Recovered/Resolved]
